FAERS Safety Report 23136668 (Version 8)
Quarter: 2024Q3

REPORT INFORMATION
  Report Type: Report from Study
  Country: US (occurrence: US)
  Receive Date: 20231102
  Receipt Date: 20240705
  Transmission Date: 20241017
  Serious: Yes (Other)
  Sender: ACADIA PHARMACEUTICALS
  Company Number: US-ACADIA PHARMACEUTICALS INC.-ACA-2023-TRF-004592

PATIENT
  Sex: Female

DRUGS (4)
  1. DAYBUE [Suspect]
     Active Substance: TROFINETIDE
     Indication: Rett syndrome
     Dosage: 30 MILLILITER, BID
     Route: 048
     Dates: end: 202311
  2. DAYBUE [Suspect]
     Active Substance: TROFINETIDE
     Dosage: 30 MILLILITER, BID
     Route: 048
  3. DAYBUE [Suspect]
     Active Substance: TROFINETIDE
     Dosage: 20 MILLILITER, BID
     Route: 048
  4. DAYBUE [Suspect]
     Active Substance: TROFINETIDE
     Dosage: 30 MILLILITER, BID
     Route: 048

REACTIONS (16)
  - Seizure [Not Recovered/Not Resolved]
  - Product use complaint [Not Recovered/Not Resolved]
  - Contusion [Not Recovered/Not Resolved]
  - Intentional dose omission [Not Recovered/Not Resolved]
  - Haematoma [Not Recovered/Not Resolved]
  - Weight decreased [Not Recovered/Not Resolved]
  - Dehydration [Not Recovered/Not Resolved]
  - Weight decreased [Not Recovered/Not Resolved]
  - Underdose [Not Recovered/Not Resolved]
  - Diarrhoea [Recovering/Resolving]
  - Diarrhoea [Not Recovered/Not Resolved]
  - Diarrhoea [Not Recovered/Not Resolved]
  - Diarrhoea [Not Recovered/Not Resolved]
  - Diarrhoea [Not Recovered/Not Resolved]
  - Diarrhoea [Recovering/Resolving]
  - Diarrhoea [Recovered/Resolved]
